FAERS Safety Report 5815667-0 (Version None)
Quarter: 2008Q3

REPORT INFORMATION
  Report Type: 
  Country: None (occurrence: None)
  Receive Date: 20080716
  Receipt Date: 20080702
  Transmission Date: 20090109
  Serious: Yes (Hospitalization)
  Sender: FDA-Public Use
  Company Number: 2008BI016885

PATIENT
  Age: 61 Year
  Sex: Male

DRUGS (2)
  1. AVONEX [Suspect]
     Dosage: IM, 30 UG; QW; IM, 30 UG; QW; IM
     Route: 030
     Dates: end: 20060801
  2. AVONEX [Suspect]
     Dosage: IM, 30 UG; QW; IM, 30 UG; QW; IM
     Route: 030
     Dates: start: 20060801

REACTIONS (1)
  - PROSTATE CANCER [None]
